FAERS Safety Report 4844579-4 (Version None)
Quarter: 2005Q4

REPORT INFORMATION
  Report Type: 
  Country: None (occurrence: None)
  Receive Date: 20051125
  Receipt Date: 20051115
  Transmission Date: 20060501
  Serious: Yes (Hospitalization)
  Sender: FDA-Public Use
  Company Number: 2005156322

PATIENT
  Age: 39 Year
  Sex: Female

DRUGS (16)
  1. FELDENE [Suspect]
     Indication: PAIN
     Dates: end: 20050916
  2. MOTRIN [Suspect]
     Indication: PAIN
     Dates: end: 20050916
  3. ALL OTHER THERAPEUTIC PRODUCTS (ALL OTHER THERAPEUTIC PRODUCTS) [Concomitant]
  4. SPIRONOLACTONE [Concomitant]
  5. PRINIFIL (LISINOPRIL) [Concomitant]
  6. PRILOSEC [Concomitant]
  7. SINEMET [Concomitant]
  8. ALBUTEROL [Concomitant]
  9. CLOBETASOL PROPIONATE (CLOBETASOL PROPIONATE) [Concomitant]
  10. NITROGLYCERIN [Concomitant]
  11. ACETAMINOPHEN [Concomitant]
  12. PREDNISONE [Concomitant]
  13. OPCON A (NAPHAZOLINE HYDROCHLORIDE, PHENIRAMINE MALEATE) [Concomitant]
  14. ESTRADIOL [Concomitant]
  15. PROVERA [Concomitant]
  16. LEVOTHROID [Concomitant]

REACTIONS (2)
  - COLITIS ISCHAEMIC [None]
  - HAEMORRHAGE [None]
